FAERS Safety Report 6602914-0 (Version None)
Quarter: 2010Q1

REPORT INFORMATION
  Report Type: 
  Country: None (occurrence: None)
  Receive Date: 20100219
  Receipt Date: 20090311
  Transmission Date: 20100710
  Serious: Yes (Hospitalization)
  Sender: FDA-Public Use
  Company Number: 2009-2373

PATIENT
  Sex: Male

DRUGS (1)
  1. APOKYN [Suspect]
     Indication: PARKINSON'S DISEASE
     Dosage: 0.3 ML, 0.3 ML, SUBCUTANEOUS
     Route: 058

REACTIONS (2)
  - FALL [None]
  - TRANSIENT ISCHAEMIC ATTACK [None]
